FAERS Safety Report 13490235 (Version 2)
Quarter: 2017Q2

REPORT INFORMATION
  Report Type: Spontaneous
  Country: GB (occurrence: GB)
  Receive Date: 20170427
  Receipt Date: 20170505
  Transmission Date: 20170830
  Serious: Yes (Other)
  Sender: FDA-Public Use
  Company Number: GB-NOVOPROD-541717

PATIENT
  Age: 37 Year
  Sex: Female

DRUGS (1)
  1. LEVEMIR [Suspect]
     Active Substance: INSULIN DETEMIR
     Indication: PRODUCT USED FOR UNKNOWN INDICATION
     Dosage: UNK
     Route: 065
     Dates: start: 201302

REACTIONS (4)
  - Female sexual dysfunction [Recovered/Resolved]
  - Stress urinary incontinence [Recovered/Resolved with Sequelae]
  - Constipation [Recovered/Resolved]
  - Rectocele [Not Recovered/Not Resolved]

NARRATIVE: CASE EVENT DATE: 2014
